FAERS Safety Report 4809285-0 (Version None)
Quarter: 2005Q4

REPORT INFORMATION
  Report Type: 
  Country: None (occurrence: None)
  Receive Date: 20051021
  Receipt Date: 20051017
  Transmission Date: 20060501
  Serious: Yes (Disabling)
  Sender: FDA-Public Use
  Company Number: 200510660BNE

PATIENT
  Age: 30 Year
  Sex: Female

DRUGS (1)
  1. DACARBAZINE [Suspect]

REACTIONS (2)
  - PAIN IN EXTREMITY [None]
  - SHOULDER PAIN [None]
